FAERS Safety Report 14604889 (Version 1)
Quarter: 2018Q1

REPORT INFORMATION
  Report Type: Spontaneous
  Country: US (occurrence: US)
  Receive Date: 20180306
  Receipt Date: 20180306
  Transmission Date: 20180509
  Serious: No
  Sender: FDA-Public Use
  Company Number: None

PATIENT
  Age: 68 Year
  Sex: Female
  Weight: 72 kg

DRUGS (6)
  1. PREMARIN [Concomitant]
     Active Substance: ESTROGENS, CONJUGATED
  2. VITAMIN D [Concomitant]
     Active Substance: CHOLECALCIFEROL
  3. ONGLYZE [Concomitant]
  4. GENERAL VITAMINS [Concomitant]
  5. COZAAR [Concomitant]
     Active Substance: LOSARTAN POTASSIUM
  6. JANUVIA [Suspect]
     Active Substance: SITAGLIPTIN PHOSPHATE
     Indication: DIABETES MELLITUS
     Route: 048
     Dates: start: 20180208, end: 20180215

REACTIONS (2)
  - Abdominal discomfort [None]
  - Diarrhoea [None]

NARRATIVE: CASE EVENT DATE: 20180215
